FAERS Safety Report 5871045-X (Version None)
Quarter: 2008Q3

REPORT INFORMATION
  Report Type: 
  Country: None (occurrence: None)
  Receive Date: 20080904
  Receipt Date: 20080826
  Transmission Date: 20090109
  Serious: Yes (Death, Hospitalization)
  Sender: FDA-Public Use
  Company Number: NL-BAXTER-2008BH009160

PATIENT
  Age: 17 Year
  Sex: Female

DRUGS (1)
  1. LIDOCAINE HYDROCHLORIDE [Suspect]
     Indication: LOCAL ANAESTHESIA
     Dosage: DOSE UNIT:UNKNOWN
     Route: 050

REACTIONS (8)
  - ACUTE RESPIRATORY DISTRESS SYNDROME [None]
  - APNOEA [None]
  - GRAND MAL CONVULSION [None]
  - HYPOXIA [None]
  - MEDICATION ERROR [None]
  - OVERDOSE [None]
  - RESPIRATORY FAILURE [None]
  - SHOCK [None]
